FAERS Safety Report 10678057 (Version 3)
Quarter: 2015Q1

REPORT INFORMATION
  Report Type: Spontaneous
  Country: US (occurrence: None)
  Receive Date: 20141223
  Receipt Date: 20150120
  Transmission Date: 20150720
  Serious: Yes (Hospitalization)
  Sender: FDA-Public Use
  Company Number: 140501

PATIENT
  Age: 12 Year
  Sex: Female
  Weight: 32.21 kg

DRUGS (2)
  1. UNSPECIFIED LAXATIVE [Concomitant]
  2. GOLYTELY [Suspect]
     Active Substance: POLYETHYLENE GLYCOL 3350\POTASSIUM CHLORIDE\SODIUM BICARBONATE\SODIUM CHLORIDE\SODIUM SULFATE ANHYDROUS
     Indication: OFF LABEL USE
     Dosage: ~12 GALLONS 1X NG
     Dates: start: 20141117, end: 20141122

REACTIONS (5)
  - Alopecia [None]
  - Overdose [None]
  - Madarosis [None]
  - Systemic lupus erythematosus [None]
  - Cardiac murmur [None]

NARRATIVE: CASE EVENT DATE: 20141123
